FAERS Safety Report 6691791-8 (Version None)
Quarter: 2010Q2

REPORT INFORMATION
  Report Type: 
  Country: None (occurrence: None)
  Receive Date: 20100422
  Receipt Date: 20091118
  Transmission Date: 20101027
  Serious: No
  Sender: FDA-Public Use
  Company Number: US-ASTRAZENECA-2009SE27459

PATIENT
  Age: 68 Year
  Sex: Female
  Weight: 79.4 kg

DRUGS (9)
  1. TOPROL-XL [Suspect]
     Route: 048
     Dates: start: 20010101
  2. TOPROL-XL [Suspect]
     Route: 048
  3. TOPROL-XL [Suspect]
     Route: 048
  4. TOPROL-XL [Suspect]
     Route: 048
  5. OMEPRAZOLE [Concomitant]
  6. CLONAZEPAM [Concomitant]
  7. ALLEGRA [Concomitant]
  8. PATANASE [Concomitant]
  9. ASPIRIN [Concomitant]

REACTIONS (2)
  - COUGH [None]
  - RHINORRHOEA [None]
